FAERS Safety Report 7031156-2 (Version None)
Quarter: 2010Q4

REPORT INFORMATION
  Report Type: 
  Country: None (occurrence: None)
  Receive Date: 20101006
  Receipt Date: 20100923
  Transmission Date: 20110411
  Serious: Yes (Life-Threatening)
  Sender: FDA-Public Use
  Company Number: FR-GENENTECH-307209

PATIENT
  Sex: Male

DRUGS (4)
  1. MABTHERA [Suspect]
     Indication: LYMPHOMA
     Dosage: 375 MG/M2, UNK
     Route: 042
     Dates: start: 20100621
  2. NEORECORMON [Suspect]
     Indication: PRODUCT USED FOR UNKNOWN INDICATION
     Dosage: UNK
     Route: 058
     Dates: start: 20100621, end: 20100830
  3. OCTAGAM [Suspect]
     Indication: PRODUCT USED FOR UNKNOWN INDICATION
     Dosage: 30 G, UNK
     Route: 041
     Dates: start: 20100628, end: 20100809
  4. BENDAMUSTINE [Suspect]
     Indication: LYMPHOMA
     Dosage: UNK
     Route: 042
     Dates: start: 20100621

REACTIONS (2)
  - JUGULAR VEIN THROMBOSIS [None]
  - SUBCLAVIAN VEIN THROMBOSIS [None]
